FAERS Safety Report 4927016-0 (Version None)
Quarter: 2006Q1

REPORT INFORMATION
  Report Type: 
  Country: None (occurrence: None)
  Receive Date: 20060228
  Receipt Date: 20051004
  Transmission Date: 20060701
  Serious: Yes (Life-Threatening, Hospitalization, Other)
  Sender: FDA-Public Use
  Company Number: US-GLAXOSMITHKLINE-A0576998A

PATIENT
  Age: 31 Year
  Sex: Female
  Weight: 86.4 kg

DRUGS (4)
  1. LAMICTAL [Suspect]
     Indication: DRUG USE FOR UNKNOWN INDICATION
     Dosage: 25MG PER DAY
     Route: 048
     Dates: start: 20050930, end: 20051003
  2. SYMBYAX [Concomitant]
  3. ZYPREXA [Concomitant]
  4. KLONOPIN [Concomitant]

REACTIONS (9)
  - DYSPHAGIA [None]
  - DYSPNOEA [None]
  - OEDEMA [None]
  - OEDEMA MOUTH [None]
  - PHARYNGOLARYNGEAL PAIN [None]
  - RASH [None]
  - RASH ERYTHEMATOUS [None]
  - RASH GENERALISED [None]
  - STEVENS-JOHNSON SYNDROME [None]
